FAERS Safety Report 18223534 (Version 1)
Quarter: 2020Q3

REPORT INFORMATION
  Report Type: Spontaneous
  Country: FR (occurrence: FR)
  Receive Date: 20200902
  Receipt Date: 20200902
  Transmission Date: 20201103
  Serious: Yes (Hospitalization)
  Sender: FDA-Public Use
  Company Number: FR-UCBSA-2020033609

PATIENT
  Age: 71 Year
  Sex: Male

DRUGS (3)
  1. KEPPRA [Suspect]
     Active Substance: LEVETIRACETAM
     Indication: EPILEPSY
     Dosage: 1000 MG
     Route: 048
     Dates: start: 202001
  2. MIANSERINE [MIANSERIN HYDROCHLORIDE] [Suspect]
     Active Substance: MIANSERIN HYDROCHLORIDE
     Indication: DEPRESSION
     Dosage: 10 MG
     Route: 048
     Dates: end: 2020
  3. URBANYL [Suspect]
     Active Substance: CLOBAZAM
     Indication: EPILEPSY
     Dosage: 5 MG
     Route: 048
     Dates: start: 202001

REACTIONS (3)
  - Confusional state [Recovered/Resolved]
  - Hyperammonaemia [Recovered/Resolved]
  - Behaviour disorder [Recovered/Resolved]

NARRATIVE: CASE EVENT DATE: 202001
